FAERS Safety Report 9001461 (Version 2)
Quarter: 2013Q1

REPORT INFORMATION
  Report Type: Report from Study
  Country: DK (occurrence: DK)
  Receive Date: 20130107
  Receipt Date: 20130307
  Transmission Date: 20140127
  Serious: Yes (Death, Hospitalization, Disabling)
  Sender: FDA-Public Use
  Company Number: DK-BAXTER-2012BAX028819

PATIENT
  Age: 71 Year
  Sex: Male
  Weight: 70 kg

DRUGS (19)
  1. SENDOXAN [Suspect]
     Indication: DIFFUSE LARGE B-CELL LYMPHOMA
     Route: 042
     Dates: start: 20110405
  2. SENDOXAN [Suspect]
     Route: 042
     Dates: start: 20110428
  3. SENDOXAN [Suspect]
     Route: 042
     Dates: start: 20110512
  4. RITUXIMAB [Suspect]
     Indication: DIFFUSE LARGE B-CELL LYMPHOMA
     Route: 042
     Dates: start: 20110405
  5. RITUXIMAB [Suspect]
     Route: 042
     Dates: start: 20110428
  6. RITUXIMAB [Suspect]
     Route: 042
     Dates: start: 20110512
  7. PREDNISOLONE [Suspect]
     Indication: DIFFUSE LARGE B-CELL LYMPHOMA
     Route: 048
     Dates: start: 20110405
  8. PREDNISOLONE [Suspect]
     Route: 048
     Dates: start: 20110428
  9. PREDNISOLONE [Suspect]
     Route: 048
     Dates: start: 20110512
  10. DOXORUBICIN [Suspect]
     Indication: DIFFUSE LARGE B-CELL LYMPHOMA
     Route: 042
     Dates: start: 20110405
  11. DOXORUBICIN [Suspect]
     Route: 042
     Dates: start: 20110428
  12. DOXORUBICIN [Suspect]
     Route: 042
     Dates: start: 20110512
  13. VINCRISTINE [Suspect]
     Indication: DIFFUSE LARGE B-CELL LYMPHOMA
     Route: 042
     Dates: start: 20110405
  14. VINCRISTINE [Suspect]
     Route: 042
     Dates: start: 20110512
  15. G-CSF [Suspect]
     Indication: DIFFUSE LARGE B-CELL LYMPHOMA
     Route: 058
     Dates: start: 20110406
  16. G-CSF [Suspect]
     Route: 058
     Dates: start: 20110429
  17. G-CSF [Suspect]
     Route: 058
     Dates: start: 20110513
  18. VINBLASTINE [Suspect]
     Indication: DIFFUSE LARGE B-CELL LYMPHOMA
     Route: 042
     Dates: start: 20110428
  19. VINBLASTINE [Suspect]
     Route: 042
     Dates: start: 20110512

REACTIONS (6)
  - Intestinal perforation [Fatal]
  - Diarrhoea [Recovered/Resolved]
  - Dehydration [Recovered/Resolved]
  - Peroneal nerve palsy [Not Recovered/Not Resolved]
  - Febrile neutropenia [Recovered/Resolved]
  - Diarrhoea [Not Recovered/Not Resolved]
